FAERS Safety Report 4513433-X (Version None)
Quarter: 2004Q4

REPORT INFORMATION
  Report Type: 
  Country: None (occurrence: None)
  Receive Date: 20041130
  Receipt Date: 20040930
  Transmission Date: 20050328
  Serious: No
  Sender: FDA-Public Use
  Company Number: US-BRISTOL-MYERS SQUIBB COMPANY-12719381

PATIENT

DRUGS (1)
  1. ERBITUX [Suspect]

REACTIONS (1)
  - DERMATITIS ACNEIFORM [None]
